FAERS Safety Report 23501267 (Version 1)
Quarter: 2024Q1

REPORT INFORMATION
  Report Type: Spontaneous
  Country: US (occurrence: US)
  Receive Date: 20240208
  Receipt Date: 20240208
  Transmission Date: 20240410
  Serious: No
  Sender: FDA-Public Use
  Company Number: US-PERRIGO-23US009207

PATIENT
  Sex: Female
  Weight: 70.295 kg

DRUGS (10)
  1. CETIRIZINE HYDROCHLORIDE [Suspect]
     Active Substance: CETIRIZINE HYDROCHLORIDE
     Indication: Hypersensitivity
     Dosage: 1 TABLET, QAM
     Route: 048
     Dates: start: 2018, end: 20230725
  2. FEXOFENADINE HYDROCHLORIDE [Suspect]
     Active Substance: FEXOFENADINE HYDROCHLORIDE
     Indication: Hypersensitivity
     Dosage: 180 MG, QD, PRN
     Route: 048
     Dates: start: 2018
  3. PROGESTERONE [Suspect]
     Active Substance: PROGESTERONE
     Indication: Menopause
     Dosage: 1 GELCAP, QHS
     Route: 048
     Dates: start: 202108, end: 20230725
  4. ESTROGENS [Suspect]
     Active Substance: ESTROGENS
     Indication: Menopause
     Dosage: 1 PATCH, TWICE A WEEK
     Route: 062
     Dates: start: 202108, end: 20230725
  5. MAGNESIUM [Suspect]
     Active Substance: MAGNESIUM
     Indication: Inflammation
     Dosage: 1 TABLET, BID
     Route: 048
     Dates: start: 2011, end: 20230725
  6. CHOLECALCIFEROL [Suspect]
     Active Substance: CHOLECALCIFEROL
     Indication: Inflammation
     Dosage: 1 SOFTGEL, QD
     Route: 048
     Dates: start: 2011, end: 20230725
  7. QUERCETIN [Suspect]
     Active Substance: QUERCETIN
     Indication: Inflammation
     Dosage: 1 CAPSULE, BID
     Route: 048
     Dates: start: 2011, end: 20230725
  8. QUERCETINE PLUS [Concomitant]
     Indication: Inflammation
     Dosage: UNKNOWN, UNKNOWN
     Route: 065
     Dates: start: 20230804
  9. PROGESTERONE CO. [Concomitant]
     Indication: Menopause
     Dosage: UNKNOWN, UNKNOWN
     Route: 065
     Dates: start: 20230801
  10. BENADRYL [Concomitant]
     Active Substance: DIPHENHYDRAMINE HYDROCHLORIDE
     Indication: Hypersensitivity
     Dosage: UNKNOWN, UNKNOWN
     Route: 065
     Dates: start: 20230801

REACTIONS (3)
  - Asthma [Not Recovered/Not Resolved]
  - Oropharyngeal pain [Not Recovered/Not Resolved]
  - Paraesthesia oral [Not Recovered/Not Resolved]

NARRATIVE: CASE EVENT DATE: 20110101
